FAERS Safety Report 5863904-9 (Version None)
Quarter: 2008Q3

REPORT INFORMATION
  Report Type: 
  Country: None (occurrence: None)
  Receive Date: 20080829
  Receipt Date: 20080822
  Transmission Date: 20090109
  Serious: Yes (Other)
  Sender: FDA-Public Use
  Company Number: JP-JNJFOC-20080704866

PATIENT
  Sex: Female
  Weight: 53 kg

DRUGS (11)
  1. REMICADE [Suspect]
     Dosage: 7TH DOSE
     Route: 042
  2. REMICADE [Suspect]
     Dosage: 7TH DOSE
     Route: 042
  3. REMICADE [Suspect]
     Dosage: 6TH DOSE
     Route: 042
  4. REMICADE [Suspect]
     Dosage: 5TH DOSE
     Route: 042
  5. REMICADE [Suspect]
     Dosage: 4TH DOSE
     Route: 042
  6. REMICADE [Suspect]
     Dosage: 3RD DOSE
     Route: 042
  7. REMICADE [Suspect]
     Dosage: 2ND DOSE
     Route: 042
  8. REMICADE [Suspect]
     Indication: CROHN'S DISEASE
     Dosage: 1ST DOSE
     Route: 042
  9. ELENTAL [Concomitant]
     Indication: CROHN'S DISEASE
     Route: 048
  10. PENTASA [Concomitant]
     Indication: CROHN'S DISEASE
     Route: 048
  11. IMURAN [Concomitant]
     Indication: CROHN'S DISEASE
     Route: 048

REACTIONS (3)
  - ABORTION INDUCED [None]
  - DRUG EXPOSURE DURING PREGNANCY [None]
  - ECTOPIC PREGNANCY [None]
